FAERS Safety Report 18494846 (Version 1)
Quarter: 2020Q4

REPORT INFORMATION
  Report Type: Spontaneous
  Country: US (occurrence: US)
  Receive Date: 20201111
  Receipt Date: 20201111
  Transmission Date: 20210114
  Serious: No
  Sender: FDA-Public Use
  Company Number: None

PATIENT
  Age: 72 Year
  Sex: Male

DRUGS (1)
  1. GUAIFENESIN (GUAIFENESIN 600MG TAB, SA) [Suspect]
     Active Substance: GUAIFENESIN
     Route: 048
     Dates: start: 20200612, end: 20200730

REACTIONS (3)
  - Pruritus [None]
  - Rash [None]
  - Urticaria [None]

NARRATIVE: CASE EVENT DATE: 20200624
